FAERS Safety Report 6674260-0 (Version None)
Quarter: 2010Q2

REPORT INFORMATION
  Report Type: 
  Country: None (occurrence: None)
  Receive Date: 20100409
  Receipt Date: 20100409
  Transmission Date: 20101027
  Serious: Yes (Hospitalization)
  Sender: FDA-Public Use
  Company Number: GB-PERRIGO-10GB008583

PATIENT
  Age: 64 Year
  Sex: Female

DRUGS (4)
  1. NAPROXEN SODIUM 12063/0055 500 MG [Suspect]
     Indication: SCIATICA
     Dosage: 500 MG, BID
     Route: 048
     Dates: start: 20091001, end: 20100322
  2. CALCICHEW D3 [Concomitant]
     Indication: DRUG USE FOR UNKNOWN INDICATION
     Dosage: 1 TABLET, QD
     Route: 048
  3. ACETAMINOPHEN AND CODEINE PHOSPHATE [Concomitant]
     Indication: DRUG USE FOR UNKNOWN INDICATION
     Dosage: UNK
     Route: 048
  4. LANSOPRAZOLE [Concomitant]
     Indication: DRUG USE FOR UNKNOWN INDICATION
     Dosage: 30 MG, QD
     Route: 048
     Dates: start: 20100322, end: 20100322

REACTIONS (4)
  - ASTHENIA [None]
  - DYSPNOEA [None]
  - FAECES DISCOLOURED [None]
  - HAEMOGLOBIN DECREASED [None]
